FAERS Safety Report 11365957 (Version 1)
Quarter: 2015Q3

REPORT INFORMATION
  Report Type: Spontaneous
  Country: US (occurrence: US)
  Receive Date: 20150811
  Receipt Date: 20150811
  Transmission Date: 20151125
  Serious: No
  Sender: FDA-Public Use
  Company Number: US-BAYER-2015-398255

PATIENT
  Age: 49 Year
  Sex: Female
  Weight: 63.49 kg

DRUGS (2)
  1. SYNTHROID [Concomitant]
     Active Substance: LEVOTHYROXINE SODIUM
     Dosage: UNK
  2. OXYTROL FOR WOMEN [Suspect]
     Active Substance: OXYBUTYNIN
     Indication: HYPERTONIC BLADDER
     Dosage: 1 DF, (4 DAYS)
     Route: 061

REACTIONS (2)
  - Rash pruritic [Unknown]
  - Expired product administered [None]

NARRATIVE: CASE EVENT DATE: 20150805
